FAERS Safety Report 10505459 (Version 7)
Quarter: 2015Q2

REPORT INFORMATION
  Report Type: Report from Study
  Country: US (occurrence: US)
  Receive Date: 20141008
  Receipt Date: 20150504
  Transmission Date: 20150821
  Serious: Yes (Hospitalization)
  Sender: FDA-Public Use
  Company Number: US-SA-2014SA098376

PATIENT
  Age: 67 Year
  Sex: Female
  Weight: 54 kg

DRUGS (1)
  1. AUBAGIO [Suspect]
     Active Substance: TERIFLUNOMIDE
     Indication: MULTIPLE SCLEROSIS
     Route: 048
     Dates: start: 20140404

REACTIONS (14)
  - Spinal column stenosis [Unknown]
  - Dyspepsia [Unknown]
  - Diverticulitis [Recovering/Resolving]
  - Muscle spasms [Unknown]
  - Stress [Unknown]
  - Large intestinal ulcer [Recovering/Resolving]
  - Diarrhoea [Recovering/Resolving]
  - Dehydration [Recovering/Resolving]
  - Muscular weakness [Unknown]
  - Dysgraphia [Unknown]
  - Product packaging issue [Unknown]
  - Pain [Recovering/Resolving]
  - Insomnia [Unknown]
  - Gait disturbance [Unknown]
